FAERS Safety Report 24772756 (Version 1)
Quarter: 2024Q4

REPORT INFORMATION
  Report Type: Spontaneous
  Country: ES (occurrence: ES)
  Receive Date: 20241225
  Receipt Date: 20241225
  Transmission Date: 20250114
  Serious: Yes (Other)
  Sender: AUROBINDO
  Company Number: ES-MLMSERVICE-20240325-4908052-1

PATIENT
  Age: 12 Year
  Sex: Male
  Weight: 88 kg

DRUGS (9)
  1. CELECOXIB [Suspect]
     Active Substance: CELECOXIB
     Indication: Pneumonia
     Dosage: 200 MILLIGRAM, TWO TIMES A DAY
     Route: 048
  2. CELECOXIB [Suspect]
     Active Substance: CELECOXIB
     Indication: Papilloma viral infection
     Dosage: 200 MILLIGRAM, ONCE A DAY
     Route: 048
  3. CELECOXIB [Suspect]
     Active Substance: CELECOXIB
     Indication: Respiratory papilloma
  4. ERLOTINIB [Suspect]
     Active Substance: ERLOTINIB
     Indication: Pneumonia
     Dosage: 150 MILLIGRAM, ONCE A DAY
     Route: 048
  5. ERLOTINIB [Suspect]
     Active Substance: ERLOTINIB
     Indication: Papilloma viral infection
  6. ERLOTINIB [Suspect]
     Active Substance: ERLOTINIB
     Indication: Respiratory papilloma
  7. BEVACIZUMAB [Suspect]
     Active Substance: BEVACIZUMAB
     Indication: Respiratory papilloma
     Dosage: UNK
     Route: 026
  8. BEVACIZUMAB [Suspect]
     Active Substance: BEVACIZUMAB
     Indication: Pneumonia
     Dosage: UNK
     Route: 042
  9. BEVACIZUMAB [Suspect]
     Active Substance: BEVACIZUMAB
     Indication: Papilloma viral infection

REACTIONS (10)
  - Renal impairment [Recovered/Resolved]
  - Respiratory failure [Unknown]
  - Laryngeal papilloma [Unknown]
  - Respiratory disorder [Unknown]
  - Proteinuria [Unknown]
  - Dysphonia [Unknown]
  - Stridor [Unknown]
  - Suture related complication [Unknown]
  - Drug effective for unapproved indication [Unknown]
  - Off label use [Unknown]
